FAERS Safety Report 5447287-4 (Version None)
Quarter: 2007Q3

REPORT INFORMATION
  Report Type: 
  Country: None (occurrence: None)
  Receive Date: 20070905
  Receipt Date: 20070905
  Transmission Date: 20080115
  Serious: Yes (Other)
  Sender: FDA-Public Use
  Company Number: None

PATIENT

DRUGS (1)
  1. STERILE WATER [Suspect]
     Indication: INFUSION
     Dosage: MYERS INFUSION ADDED      IV DRIP
     Route: 041
     Dates: start: 20070807, end: 20070822

REACTIONS (10)
  - ARTHRALGIA [None]
  - BODY TEMPERATURE DECREASED [None]
  - CHILLS [None]
  - DIARRHOEA [None]
  - HEADACHE [None]
  - HEPATIC PAIN [None]
  - INFUSION RELATED REACTION [None]
  - MEDICATION ERROR [None]
  - PAIN [None]
  - VISION BLURRED [None]
